FAERS Safety Report 8310619-3 (Version None)
Quarter: 2012Q2

REPORT INFORMATION
  Report Type: 
  Country: None (occurrence: None)
  Receive Date: 20120425
  Receipt Date: 20120425
  Transmission Date: 20120825
  Serious: No
  Sender: FDA-Public Use
  Company Number: None

PATIENT
  Age: 46 Year
  Sex: Male
  Weight: 71.667 kg

DRUGS (1)
  1. PROPECIA [Suspect]
     Indication: ALOPECIA
     Dosage: NORMAL HAIR RETENTION STRENGTH
     Route: 048
     Dates: start: 20030403, end: 20050403

REACTIONS (4)
  - ORGASM ABNORMAL [None]
  - MIDDLE INSOMNIA [None]
  - EJACULATION DISORDER [None]
  - GENITAL HYPOAESTHESIA [None]
